FAERS Safety Report 4392484-2 (Version None)
Quarter: 2004Q3

REPORT INFORMATION
  Report Type: 
  Country: None (occurrence: None)
  Receive Date: 20040702
  Receipt Date: 20040624
  Transmission Date: 20050211
  Serious: Yes (Other)
  Sender: FDA-Public Use
  Company Number: US-JNJFOC-20040607343

PATIENT
  Age: 64 Year
  Sex: Female

DRUGS (2)
  1. ACETAMINOPHEN [Suspect]
     Indication: ARTHRALGIA
     Dosage: 650-1300 MG TID PRN
     Dates: start: 20040606, end: 20040620
  2. ALTACE [Concomitant]

REACTIONS (5)
  - DRUG HYPERSENSITIVITY [None]
  - FEELING ABNORMAL [None]
  - FOOD POISONING [None]
  - PRURITUS [None]
  - RASH MACULAR [None]
